FAERS Safety Report 16392779 (Version 1)
Quarter: 2019Q2

REPORT INFORMATION
  Report Type: Spontaneous
  Country: CN (occurrence: CN)
  Receive Date: 20190605
  Receipt Date: 20190605
  Transmission Date: 20190711
  Serious: Yes (Hospitalization)
  Sender: FDA-Public Use
  Company Number: CN-BAUSCH-BL-2019-015882

PATIENT
  Age: 19 Year
  Sex: Female

DRUGS (4)
  1. D-PENICILLAMINE [Suspect]
     Active Substance: PENICILLAMINE
     Indication: HEPATO-LENTICULAR DEGENERATION
     Route: 065
     Dates: start: 2014, end: 2015
  2. ZINC SULFATE [Suspect]
     Active Substance: ZINC SULFATE\ZINC SULFATE ANHYDROUS
     Indication: HEPATO-LENTICULAR DEGENERATION
     Route: 065
     Dates: start: 2014, end: 2015
  3. D-PENICILLAMINE [Suspect]
     Active Substance: PENICILLAMINE
     Route: 065
     Dates: start: 2016
  4. ZINC SULFATE [Suspect]
     Active Substance: ZINC SULFATE\ZINC SULFATE ANHYDROUS
     Route: 065
     Dates: start: 2016

REACTIONS (3)
  - Treatment noncompliance [Unknown]
  - Hepato-lenticular degeneration [Recovering/Resolving]
  - Condition aggravated [Recovering/Resolving]

NARRATIVE: CASE EVENT DATE: 2015
